FAERS Safety Report 10732760 (Version 1)
Quarter: 2015Q1

REPORT INFORMATION
  Report Type: Spontaneous
  Country: FR (occurrence: None)
  Receive Date: 20150120
  Receipt Date: 20150120
  Transmission Date: 20150721
  Serious: Yes (Disabling)
  Sender: FDA-Public Use
  Company Number: AXC-2015-000017

PATIENT
  Age: 64 Year
  Sex: Female

DRUGS (5)
  1. PYLERA [Suspect]
     Active Substance: BISMUTH SUBCITRATE POTASSIUM\METRONIDAZOLE\TETRACYCLINE HYDROCHLORIDE
     Indication: ULCER
     Route: 048
     Dates: start: 20141031, end: 20141109
  2. SELOKEN /00376902/ (METOPROLOL TARTRATE) [Concomitant]
  3. IBUPROFEN. [Concomitant]
     Active Substance: IBUPROFEN
  4. CRESTOR [Concomitant]
     Active Substance: ROSUVASTATIN CALCIUM
  5. PARACETAMOL [Concomitant]
     Active Substance: ACETAMINOPHEN

REACTIONS (11)
  - Dysarthria [None]
  - Abdominal pain [None]
  - Encephalopathy [None]
  - Somnolence [None]
  - Optic neuritis [None]
  - Headache [None]
  - Dysgeusia [None]
  - Visual acuity reduced [None]
  - Paraesthesia [None]
  - Dysphemia [None]
  - Vertigo [None]

NARRATIVE: CASE EVENT DATE: 2014
